FAERS Safety Report 22606796 (Version 1)
Quarter: 2023Q2

REPORT INFORMATION
  Report Type: Spontaneous
  Country: FR (occurrence: FR)
  Receive Date: 20230615
  Receipt Date: 20230615
  Transmission Date: 20230722
  Serious: Yes (Hospitalization)
  Sender: FDA-Public Use
  Company Number: None

PATIENT
  Age: 62 Year
  Sex: Female
  Weight: 58 kg

DRUGS (3)
  1. CLINDAMYCIN [Suspect]
     Active Substance: CLINDAMYCIN
     Indication: Toxoplasmosis
     Dosage: 600 MG, 4X/DAY
     Route: 048
     Dates: start: 20230515, end: 20230519
  2. SULFADIAZINE [Suspect]
     Active Substance: SULFADIAZINE
     Indication: Toxoplasmosis
     Dosage: 1 G, 4X/DAY
     Route: 048
     Dates: start: 20230504, end: 20230514
  3. DOLIPRANE [Suspect]
     Active Substance: ACETAMINOPHEN
     Indication: Pain
     Dosage: 1 G, 2X/DAY
     Route: 048
     Dates: start: 20230513, end: 20230517

REACTIONS (2)
  - Hepatic cytolysis [Recovered/Resolved]
  - Rash maculo-papular [Recovered/Resolved]

NARRATIVE: CASE EVENT DATE: 20230513
